FAERS Safety Report 9188791 (Version 1)
Quarter: 2013Q1

REPORT INFORMATION
  Report Type: Report from Study
  Country: US (occurrence: US)
  Receive Date: 20130326
  Receipt Date: 20130326
  Transmission Date: 20140127
  Serious: Yes (Death, Hospitalization, Other)
  Sender: FDA-Public Use
  Company Number: US-ACTELION-A-US2012-75963

PATIENT
  Age: 60 Year
  Sex: Female

DRUGS (5)
  1. TRACLEER [Suspect]
     Indication: PULMONARY ARTERIAL HYPERTENSION
     Dosage: UNK
     Route: 048
     Dates: end: 20130313
  2. TYVASO [Suspect]
  3. OXYGEN [Concomitant]
  4. SILDENAFIL [Concomitant]
  5. LASIX [Concomitant]

REACTIONS (14)
  - Death [Fatal]
  - Pulmonary hypertension [Unknown]
  - Cardiac failure congestive [Unknown]
  - Fluid retention [Unknown]
  - Ascites [Unknown]
  - Oedema [Unknown]
  - Local swelling [Unknown]
  - Pain in extremity [Unknown]
  - Pulmonary arterial pressure increased [Unknown]
  - Dyspnoea [Unknown]
  - Cardiomegaly [Unknown]
  - Nasal congestion [Unknown]
  - Middle insomnia [Unknown]
  - Cardiac enzymes increased [Unknown]
